FAERS Safety Report 4572298-0 (Version None)
Quarter: 2005Q1

REPORT INFORMATION
  Report Type: 
  Country: None (occurrence: None)
  Receive Date: 20050203
  Receipt Date: 20050127
  Transmission Date: 20050727
  Serious: Yes (Hospitalization)
  Sender: FDA-Public Use
  Company Number: 2004SE04994

PATIENT
  Age: 70 Year
  Sex: Male

DRUGS (4)
  1. BLOPRESS [Suspect]
     Indication: HYPERTENSION
     Dosage: 4 MG QD PO
     Route: 048
     Dates: end: 20040617
  2. BLOPRESS [Suspect]
     Indication: HYPERTENSION
     Dosage: 4 MG QD PO
     Route: 048
     Dates: start: 20040812, end: 20040812
  3. NORVASC [Concomitant]
  4. THEOPHYLLINE [Concomitant]

REACTIONS (4)
  - DERMATITIS EXFOLIATIVE [None]
  - ERYTHEMA [None]
  - PRURITUS [None]
  - RASH GENERALISED [None]
